FAERS Safety Report 5924829-3 (Version None)
Quarter: 2008Q4

REPORT INFORMATION
  Report Type: 
  Country: None (occurrence: None)
  Receive Date: 20081020
  Receipt Date: 20081020
  Transmission Date: 20090506
  Serious: Yes (Hospitalization)
  Sender: FDA-Public Use
  Company Number: None

PATIENT
  Sex: Male
  Weight: 86.3 kg

DRUGS (8)
  1. SORAFENIB [Suspect]
     Indication: PROSTATE CANCER
     Dosage: 400MG BID PO
     Route: 048
     Dates: start: 20080731
  2. DOCETAXEL [Suspect]
     Indication: PROSTATE CANCER
     Dosage: 75 MG/M2 Q3WKS IV
     Route: 042
     Dates: start: 20080731
  3. ATENOLOL [Concomitant]
  4. FENTANYL CITRATE [Concomitant]
  5. LUPRON [Concomitant]
  6. PREDNISONE TAB [Concomitant]
  7. INSULIN [Suspect]
  8. AMLODIPINE BESYLATE AND BENAZEPRIL HCL [Concomitant]

REACTIONS (3)
  - FEBRILE NEUTROPENIA [None]
  - LYMPHOCYTE COUNT DECREASED [None]
  - WHITE BLOOD CELL COUNT DECREASED [None]
